FAERS Safety Report 10346141 (Version 1)
Quarter: 2014Q3

REPORT INFORMATION
  Report Type: Spontaneous
  Country: CH (occurrence: CH)
  Receive Date: 20140728
  Receipt Date: 20140728
  Transmission Date: 20150326
  Serious: Yes (Life-Threatening, Hospitalization)
  Sender: FDA-Public Use
  Company Number: CH-SA-2014SA098933

PATIENT
  Age: 20 Year
  Sex: Female
  Weight: 39 kg

DRUGS (40)
  1. CLEXANE [Suspect]
     Active Substance: ENOXAPARIN SODIUM
     Indication: THROMBOSIS PROPHYLAXIS
     Dosage: FORM:VIALS?ADD INFO: 7-12.03.2014, 24.30.03,10.04-5.05.2014
     Route: 058
     Dates: start: 20140307, end: 20140505
  2. CEFEPIME [Suspect]
     Active Substance: CEFEPIME\CEFEPIME HYDROCHLORIDE
     Indication: STAPHYLOCOCCAL SEPSIS
     Dosage: ADD INFO: 4-12.03.2014 AND 5-16.04.2014
     Route: 041
     Dates: start: 20140304, end: 20140416
  3. PANTOZOL [Suspect]
     Active Substance: PANTOPRAZOLE SODIUM
     Indication: GASTRITIS PROPHYLAXIS
     Route: 065
     Dates: start: 20140412, end: 20140505
  4. URSOFALK [Concomitant]
     Active Substance: URSODIOL
     Dosage: LIQUIDS, SUSPENSIONS
  5. TEMESTA [Concomitant]
     Active Substance: LORAZEPAM
     Route: 060
  6. FLUIMUCIL [Concomitant]
     Active Substance: ACETYLCYSTEINE
  7. ROCEPHIN [Suspect]
     Active Substance: CEFTRIAXONE SODIUM
     Indication: STAPHYLOCOCCAL SEPSIS
     Dosage: FORM: AMOULES, INTRAVENOUS?ADD INFO: ONE DOSE ON 3.03.2014 AGAIN 12.-15.04.2014
     Route: 041
     Dates: start: 20140303, end: 20140415
  8. NOROXIN [Suspect]
     Active Substance: NORFLOXACIN
     Indication: PYELONEPHRITIS
     Route: 048
     Dates: start: 20140220, end: 20140224
  9. OBRACIN [Suspect]
     Active Substance: TOBRAMYCIN
     Indication: FEBRILE NEUTROPENIA
     Dosage: FORM: VIALS
     Route: 041
     Dates: start: 20140303, end: 20140305
  10. DAFALGAN [Suspect]
     Active Substance: ACETAMINOPHEN
     Indication: PYREXIA
     Route: 048
     Dates: start: 20140306, end: 201404
  11. MORPHINE [Concomitant]
     Active Substance: MORPHINE
  12. PETHIDINE [Concomitant]
     Active Substance: MEPERIDINE
  13. SOLU-MEDROL [Concomitant]
     Active Substance: METHYLPREDNISOLONE SODIUM SUCCINATE
     Dosage: INFUSION AMPOULES
  14. DERMOVATE [Concomitant]
     Active Substance: CLOBETASOL
     Dosage: STRENGTH: 0.5 MG
  15. BEPANTHEN [Concomitant]
     Dosage: LIQUIDS, LOTIONS
  16. NEOCITRAN (ACETAMINOPHEN) [Suspect]
     Active Substance: ACETANILIDE\ASCORBIC ACID\PHENIRAMINE MALEATE\PHENYLEPHRINE HYDROCHLORIDE
     Indication: PRODUCT USED FOR UNKNOWN INDICATION
     Route: 048
     Dates: start: 201402, end: 201402
  17. AMBISOME [Suspect]
     Active Substance: AMPHOTERICIN B
     Indication: PNEUMONIA FUNGAL
     Dosage: FORM: INFUSION AMPOULES, DRY VIALS/BOTTLES
     Route: 042
     Dates: start: 20140307, end: 20140404
  18. ETHINYLESTRADIOL/LEVONORGESTREL [Concomitant]
     Active Substance: ETHINYL ESTRADIOL\LEVONORGESTREL
  19. FLAGYL [Suspect]
     Active Substance: METRONIDAZOLE\METRONIDAZOLE HYDROCHLORIDE
     Indication: DIARRHOEA
     Dosage: ADD INFO: 9-26.03.2014 AND 12.-15.04.2014
     Route: 041
     Dates: start: 20140309, end: 20140415
  20. TAZOBAC [Suspect]
     Active Substance: PIPERACILLIN SODIUM\TAZOBACTAM SODIUM
     Indication: FEBRILE NEUTROPENIA
     Dosage: FORM:VIALS?AA INFO:2-08.04.2014 AND ONE MORE DOSE ON 11.04.2014
     Route: 042
     Dates: start: 20140402, end: 20140411
  21. VANCOCIN [Suspect]
     Active Substance: VANCOMYCIN HYDROCHLORIDE
     Indication: FEBRILE NEUTROPENIA
     Dosage: FORM:VIALS?ADD INFO: 6-07.03.2014 AND 26.03-4.2014
     Route: 042
     Dates: start: 20140306, end: 201404
  22. ADDAMEL [Concomitant]
  23. NOVALGIN [Suspect]
     Active Substance: METAMIZOLE SODIUM
     Indication: NEPHROSTOMY
     Dosage: ROUTE:OTHER, INITIALLY IV LATER ON ORAL
     Dates: start: 20131201, end: 20140305
  24. LASIX [Suspect]
     Active Substance: FUROSEMIDE
     Indication: OEDEMA PERIPHERAL
     Route: 042
     Dates: start: 20140322, end: 201404
  25. TRICLOSAN. [Suspect]
     Active Substance: TRICLOSAN
     Indication: RASH GENERALISED
     Dosage: FREQUENCY:AS NECESSARY?FORM: LIQUIDS,SOAPS/WASHES
     Route: 061
     Dates: start: 20140304, end: 201404
  26. DALACIN [Suspect]
     Active Substance: CLINDAMYCIN\CLINDAMYCIN PHOSPHATE
     Indication: PRODUCT USED FOR UNKNOWN INDICATION
     Dosage: FORM :POWDERS,GRANULES
     Route: 041
     Dates: start: 20140416, end: 20140423
  27. TAVEGYL [Concomitant]
     Active Substance: CLEMASTINE FUMARATE
  28. ZOFRAN [Concomitant]
     Active Substance: ONDANSETRON HYDROCHLORIDE
  29. MOTILIUM [Concomitant]
     Active Substance: DOMPERIDONE
     Dosage: STRENGTH: 10 MG
  30. FENISTIL [Concomitant]
     Active Substance: DIMETHINDENE
     Dosage: STRENGTH: 1 MG, GELS AND SOLS
  31. FAT EMULSION NOS [Concomitant]
     Active Substance: EGG PHOSPHOLIPIDS\SAFFLOWER OIL\SOYBEAN OIL
  32. FRAGMIN [Suspect]
     Active Substance: DALTEPARIN SODIUM
     Indication: THROMBOSIS PROPHYLAXIS
     Dosage: FORM: VIALS
     Route: 058
     Dates: start: 20140331, end: 20140410
  33. MERONEM [Suspect]
     Active Substance: MEROPENEM
     Indication: FEBRILE NEUTROPENIA
     Dosage: FORM: AMPOULES
     Route: 042
     Dates: start: 20140312, end: 20140402
  34. VFEND [Suspect]
     Active Substance: VORICONAZOLE
     Indication: PNEUMONIA FUNGAL
     Dosage: FORM:POWDERS
     Route: 041
     Dates: start: 20140314, end: 20140503
  35. IMODIUM [Concomitant]
     Active Substance: LOPERAMIDE HYDROCHLORIDE
  36. VITALIPID /USA/ [Concomitant]
  37. EXCIPIAL U LIPOLOT [Suspect]
     Active Substance: UREA
     Indication: RASH GENERALISED
     Dosage: FREQUENCY:AS NECESSARY
     Route: 061
     Dates: start: 20140324, end: 201404
  38. PERFALGAN [Suspect]
     Active Substance: ACETAMINOPHEN
     Indication: PYREXIA
     Dosage: FORM: INFUSION,AMPOULESBAGS
     Route: 041
     Dates: start: 201403, end: 201404
  39. NEUPOGEN [Concomitant]
     Active Substance: FILGRASTIM
  40. XYZAL [Concomitant]
     Active Substance: LEVOCETIRIZINE DIHYDROCHLORIDE

REACTIONS (26)
  - Thrombocytopenia [Recovered/Resolved]
  - Staphylococcal sepsis [None]
  - Oedema peripheral [None]
  - Lymphadenopathy [Recovered/Resolved]
  - Proteinuria [Recovered/Resolved]
  - Anaemia [Recovered/Resolved]
  - Drug reaction with eosinophilia and systemic symptoms [Recovered/Resolved]
  - Dyspnoea [Recovered/Resolved]
  - Renal impairment [Recovered/Resolved]
  - Febrile neutropenia [None]
  - Bone marrow oedema [None]
  - Pancytopenia [Recovered/Resolved]
  - Dermatitis exfoliative [Recovered/Resolved]
  - Rash [Recovered/Resolved]
  - Encephalopathy [Recovered/Resolved]
  - Pneumonia fungal [None]
  - Myelofibrosis [None]
  - Febrile bone marrow aplasia [Recovered/Resolved]
  - Shock [Recovered/Resolved]
  - Hepatosplenomegaly [Recovered/Resolved]
  - Rash maculo-papular [Recovered/Resolved]
  - Staphylococcal bacteraemia [Recovered/Resolved]
  - Renal tubular disorder [None]
  - Pyrexia [Recovered/Resolved]
  - Chills [Recovered/Resolved]
  - Hepatitis cholestatic [Recovered/Resolved]

NARRATIVE: CASE EVENT DATE: 201403
